FAERS Safety Report 4637977-5 (Version None)
Quarter: 2005Q2

REPORT INFORMATION
  Report Type: 
  Country: None (occurrence: None)
  Receive Date: 20050415
  Receipt Date: 20030331
  Transmission Date: 20051028
  Serious: No
  Sender: FDA-Public Use
  Company Number: 10781

PATIENT
  Age: 24 Month
  Sex: Male

DRUGS (2)
  1. VINCRISTINE SULFATE [Suspect]
     Indication: GLIOMA
     Dosage: 0.98 MG FREQ IV
     Route: 042
     Dates: start: 20050322
  2. CARBOPLATIN [Suspect]
     Indication: GLIOMA
     Dosage: 360 MG FREQ IV
     Route: 042
     Dates: start: 20050322

REACTIONS (2)
  - RASH [None]
  - URTICARIA [None]
